FAERS Safety Report 10146654 (Version 2)
Quarter: 2014Q2

REPORT INFORMATION
  Report Type: Spontaneous
  Country: US (occurrence: US)
  Receive Date: 20140501
  Receipt Date: 20140508
  Transmission Date: 20141212
  Serious: Yes (Hospitalization)
  Sender: FDA-Public Use
  Company Number: US-BAXTER-2014BAX020914

PATIENT
  Sex: Female

DRUGS (3)
  1. DIANEAL LOW CALCIUM [Suspect]
     Indication: PERITONEAL DIALYSIS
     Route: 033
     Dates: start: 2014
  2. DIANEAL LOW CALCIUM [Suspect]
     Indication: PERITONEAL DIALYSIS
     Route: 033
     Dates: start: 2014, end: 20140417
  3. DIANEAL LOW CALCIUM [Suspect]
     Route: 033
     Dates: start: 20140417

REACTIONS (3)
  - Hypertension [Recovering/Resolving]
  - Fluid overload [Recovering/Resolving]
  - Fatigue [Recovering/Resolving]
